FAERS Safety Report 8381557-5 (Version None)
Quarter: 2012Q2

REPORT INFORMATION
  Report Type: 
  Country: None (occurrence: None)
  Receive Date: 20120523
  Receipt Date: 20120508
  Transmission Date: 20120825
  Serious: Yes (Hospitalization, Other)
  Sender: FDA-Public Use
  Company Number: CHPA2012US010623

PATIENT
  Age: 90 Year
  Sex: Female

DRUGS (1)
  1. EXCEDRIN (MIGRAINE) [Suspect]
     Indication: HEADACHE
     Dosage: 1-3 DF, QD
     Route: 048

REACTIONS (8)
  - HIP FRACTURE [None]
  - UNDERDOSE [None]
  - OVERDOSE [None]
  - POLLAKIURIA [None]
  - HEADACHE [None]
  - FEELING ABNORMAL [None]
  - BACK PAIN [None]
  - ULCER HAEMORRHAGE [None]
